FAERS Safety Report 25076236 (Version 1)
Quarter: 2025Q1

REPORT INFORMATION
  Report Type: Spontaneous
  Country: FR (occurrence: FR)
  Receive Date: 20250313
  Receipt Date: 20250313
  Transmission Date: 20250408
  Serious: Yes (Hospitalization)
  Sender: MERCK SHARP & DOHME LLC
  Company Number: None

PATIENT
  Age: 8 Year
  Sex: Male
  Weight: 23 kg

DRUGS (13)
  1. NOXAFIL [Interacting]
     Active Substance: POSACONAZOLE
     Indication: Antifungal prophylaxis
     Route: 042
     Dates: start: 20250217, end: 20250224
  2. SANDIMMUN 50 mg/ml, solution for injection for I.V. infusion [Concomitant]
  3. UROMITEXAN 5 g/50 ml, solution for injection for infusion in vial [Concomitant]
  4. URSOFALK, oral solution 50 mg/ml [Concomitant]
  5. CEFEPIME VIATRIS 2 g, powder for solution for injection [Concomitant]
  6. ZOVIRAX 250 mg, powder for solution for injection (IV) [Concomitant]
  7. CELLCEPT 1 g/5 ml, powder for oral suspension [Concomitant]
  8. CLOBAZAM [Concomitant]
     Active Substance: CLOBAZAM
  9. FLUDARABINE TEVA 25 mg/ml, solution for dilution for injection/infu... [Concomitant]
  10. RITUXIMAB [Concomitant]
     Active Substance: RITUXIMAB
  11. CYCLOPHOSPHAMIDE [Interacting]
     Active Substance: CYCLOPHOSPHAMIDE
     Indication: Bone marrow conditioning regimen
     Route: 042
     Dates: start: 20250220, end: 20250221
  12. BUSULFAN FRESENIUS KABI 6 mg/ml, concentrate for solution for infusion [Concomitant]
  13. CAMPATH 30 mg/ml, solution for dilution for infusion [Concomitant]

REACTIONS (2)
  - Cystitis haemorrhagic [Recovering/Resolving]
  - Drug interaction [Recovered/Resolved]

NARRATIVE: CASE EVENT DATE: 20250220
